FAERS Safety Report 7367409-8 (Version None)
Quarter: 2011Q1

REPORT INFORMATION
  Report Type: 
  Country: None (occurrence: None)
  Receive Date: 20110322
  Receipt Date: 20110316
  Transmission Date: 20110831
  Serious: Yes (Hospitalization)
  Sender: FDA-Public Use
  Company Number: US-GENZYME-FABR-1001544

PATIENT
  Sex: Female

DRUGS (3)
  1. FABRAZYME [Suspect]
     Indication: FABRY'S DISEASE
     Dosage: 35 MG, Q3W
     Route: 042
     Dates: start: 20100214
  2. FABRAZYME [Suspect]
     Dosage: 65 MG, Q2W
     Route: 042
     Dates: start: 20070323, end: 20091017
  3. FABRAZYME [Suspect]
     Dosage: 35 MG, Q2W
     Route: 042
     Dates: start: 20091017, end: 20100214

REACTIONS (2)
  - ERYTHEMA [None]
  - SEPSIS [None]
